FAERS Safety Report 6618868-7 (Version None)
Quarter: 2010Q1

REPORT INFORMATION
  Report Type: 
  Country: None (occurrence: None)
  Receive Date: 20100305
  Receipt Date: 20100305
  Transmission Date: 20100710
  Serious: Yes (Hospitalization)
  Sender: FDA-Public Use
  Company Number: None

PATIENT
  Age: 40 Year
  Sex: Female
  Weight: 77.1115 kg

DRUGS (2)
  1. GEODON [Suspect]
     Indication: ADJUVANT THERAPY
     Dosage: 120MG ONCE DAILY PO
     Route: 048
     Dates: start: 20100227, end: 20100302
  2. PRISTIQ [Concomitant]

REACTIONS (3)
  - BLOOD PRESSURE INCREASED [None]
  - DRUG INEFFECTIVE [None]
  - PANIC ATTACK [None]
